FAERS Safety Report 4301684-9 (Version None)
Quarter: 2004Q1

REPORT INFORMATION
  Report Type: 
  Country: None (occurrence: None)
  Receive Date: 20040218
  Receipt Date: 20031129
  Transmission Date: 20041129
  Serious: Yes (Other)
  Sender: FDA-Public Use
  Company Number: 2003-09-1100

PATIENT
  Age: 58 Year
  Sex: Female
  Weight: 81.6475 kg

DRUGS (5)
  1. PEG-INTRON [Suspect]
     Indication: HEPATITIS C
     Dosage: 96 MCG SUBCUTANEOUS
     Route: 058
     Dates: start: 20030714, end: 20030904
  2. REBETOL [Suspect]
     Indication: HEPATITIS C
     Dosage: 1000 MG QD ORAL
     Route: 048
     Dates: start: 20030714, end: 20030904
  3. NORVASC [Concomitant]
  4. PREVACID [Concomitant]
  5. PAXIL [Concomitant]

REACTIONS (3)
  - CELLULITIS [None]
  - INJECTION SITE VESICLES [None]
  - RASH [None]
